FAERS Safety Report 10022893 (Version 4)
Quarter: 2014Q2

REPORT INFORMATION
  Report Type: Spontaneous
  Country: JP (occurrence: JP)
  Receive Date: 20140319
  Receipt Date: 20140418
  Transmission Date: 20141212
  Serious: Yes (Other)
  Sender: FDA-Public Use
  Company Number: JP-PFIZER INC-2014077973

PATIENT
  Age: 61 Year
  Sex: Male

DRUGS (13)
  1. MS CONTIN [Suspect]
     Indication: ANALGESIC THERAPY
     Dosage: UNK
     Route: 065
  2. CISPLATIN [Suspect]
     Indication: HEAD AND NECK CANCER
     Dosage: 80 MG/M2, UNK
     Route: 065
  3. FLUOROURACIL [Suspect]
     Indication: HEAD AND NECK CANCER
     Dosage: 1000 MG/BODY (DAY 1-5), UNK
     Route: 065
  4. OXYCONTIN [Suspect]
     Indication: ANALGESIC THERAPY
     Dosage: 10MG, UNK
  5. OXINORM (OXYCODONE HYDROCHLORIDE) [Suspect]
     Indication: ANALGESIC THERAPY
     Dosage: UNK
     Route: 065
  6. OXYFAST [Suspect]
     Indication: ANALGESIC THERAPY
     Dosage: UNK
     Route: 065
  7. NOVAMIN [Concomitant]
  8. QUETIAPINE [Concomitant]
  9. OLANZAPINE [Concomitant]
  10. APREPITANT [Concomitant]
     Indication: ANTIEMETIC SUPPORTIVE CARE
  11. DEXAMETHASONE [Concomitant]
     Indication: ANTIEMETIC SUPPORTIVE CARE
  12. LORAZEPAM [Concomitant]
     Indication: PROPHYLAXIS
  13. PALONOSETRON HYDROCHLORIDE [Concomitant]
     Indication: ANTIEMETIC SUPPORTIVE CARE

REACTIONS (3)
  - Oesophageal rupture [Not Recovered/Not Resolved]
  - Vomiting [Not Recovered/Not Resolved]
  - Nausea [Not Recovered/Not Resolved]
